FAERS Safety Report 7878611-0 (Version None)
Quarter: 2011Q4

REPORT INFORMATION
  Report Type: 
  Country: None (occurrence: None)
  Receive Date: 20111101
  Receipt Date: 20111101
  Transmission Date: 20120403
  Serious: Yes (Disabling)
  Sender: FDA-Public Use
  Company Number: None

PATIENT
  Age: 64 Year
  Sex: Male
  Weight: 918.07 kg

DRUGS (1)
  1. TACROLIMUS [Suspect]

REACTIONS (3)
  - GASTROINTESTINAL DISORDER [None]
  - PRODUCT SUBSTITUTION ISSUE [None]
  - IMMUNOSUPPRESSANT DRUG LEVEL DECREASED [None]
